FAERS Safety Report 9402372 (Version 1)
Quarter: 2013Q3

REPORT INFORMATION
  Report Type: Spontaneous
  Country: HR (occurrence: HR)
  Receive Date: 20130716
  Receipt Date: 20130716
  Transmission Date: 20140515
  Serious: Yes (Hospitalization)
  Sender: FDA-Public Use
  Company Number: HR-ELI_LILLY_AND_COMPANY-HR201307003532

PATIENT
  Sex: 0

DRUGS (3)
  1. ZYPREXA VELOTAB [Suspect]
     Indication: THINKING ABNORMAL
     Dosage: 2.5 MG, BID
     Route: 064
  2. ELICEA                             /01588502/ [Concomitant]
     Dosage: UNK, QD
  3. NORMABEL [Concomitant]
     Dosage: 2 MG, UNK
     Route: 048

REACTIONS (2)
  - Foetal growth restriction [Unknown]
  - Foetal exposure during pregnancy [Not Recovered/Not Resolved]
